FAERS Safety Report 10085618 (Version 1)
Quarter: 2014Q2

REPORT INFORMATION
  Report Type: Spontaneous
  Country: US (occurrence: US)
  Receive Date: 20140418
  Receipt Date: 20140418
  Transmission Date: 20141212
  Serious: Yes (Death)
  Sender: FDA-Public Use
  Company Number: US-ROCHE-1386309

PATIENT
  Age: 72 Year
  Sex: Female

DRUGS (2)
  1. LUCENTIS [Suspect]
     Indication: RETINAL HAEMORRHAGE
     Dosage: BOTH EYES, ABOUT A YEAR
     Route: 065
  2. LUCENTIS [Suspect]
     Indication: VISUAL ACUITY REDUCED

REACTIONS (4)
  - Cardiopulmonary failure [Fatal]
  - Cerebrovascular accident [Fatal]
  - Loss of consciousness [Fatal]
  - Anoxia [Fatal]
